FAERS Safety Report 25030333 (Version 6)
Quarter: 2025Q3

REPORT INFORMATION
  Report Type: Spontaneous
  Country: JP (occurrence: JP)
  Receive Date: 20250303
  Receipt Date: 20250718
  Transmission Date: 20251021
  Serious: Yes (Hospitalization, Other)
  Sender: BRISTOL-MYERS SQUIBB COMPANY
  Company Number: JP-BRISTOL-MYERS SQUIBB COMPANY-2025-030271

PATIENT
  Age: 48 Year
  Sex: Male
  Weight: 77.6 kg

DRUGS (12)
  1. ELIQUIS [Suspect]
     Active Substance: APIXABAN
     Indication: Coagulation factor VIII level increased
     Dates: start: 20230317, end: 20240701
  2. ELIQUIS [Suspect]
     Active Substance: APIXABAN
     Dates: start: 20241109
  3. ELIQUIS [Suspect]
     Active Substance: APIXABAN
     Dates: start: 20250122, end: 20250215
  4. ELIQUIS [Suspect]
     Active Substance: APIXABAN
     Dates: start: 20250218, end: 20250224
  5. ELIQUIS [Suspect]
     Active Substance: APIXABAN
     Dates: start: 20240705, end: 20240912
  6. RUPATADINE FUMARATE [Concomitant]
     Active Substance: RUPATADINE FUMARATE
     Indication: Rhinitis allergic
     Dates: start: 20220421
  7. DICLOFENAC SODIUM [Concomitant]
     Active Substance: DICLOFENAC SODIUM
     Indication: Haemophilic arthropathy
     Dates: start: 20220427
  8. MAGNESIUM OXIDE [Concomitant]
     Active Substance: MAGNESIUM OXIDE
     Indication: Constipation
     Dates: start: 20230326
  9. MELOXICAM [Concomitant]
     Active Substance: MELOXICAM
     Indication: Haemophilic arthropathy
     Dates: start: 20230608
  10. PREGABALIN [Concomitant]
     Active Substance: PREGABALIN
     Indication: Cubital tunnel syndrome
     Dates: start: 20240321
  11. ALLOPURINOL [Concomitant]
     Active Substance: ALLOPURINOL
     Indication: Hyperuricaemia
     Dates: start: 20231108
  12. CEPHALEXIN [Concomitant]
     Active Substance: CEPHALEXIN
     Indication: Product used for unknown indication
     Route: 048

REACTIONS (15)
  - Haemorrhagic diathesis [Unknown]
  - Squamous cell carcinoma of the oral cavity [Not Recovered/Not Resolved]
  - Eczema [Not Recovered/Not Resolved]
  - Tongue cancer metastatic [Not Recovered/Not Resolved]
  - Tumour haemorrhage [Recovered/Resolved]
  - Headache [Not Recovered/Not Resolved]
  - Constipation [Unknown]
  - Road traffic accident [Unknown]
  - Hand fracture [Unknown]
  - General physical health deterioration [Unknown]
  - Disease progression [Unknown]
  - Treatment noncompliance [Unknown]
  - Mandibular mass [Not Recovered/Not Resolved]
  - Arthralgia [Unknown]
  - Staphylococcal infection [Unknown]

NARRATIVE: CASE EVENT DATE: 20230607
